FAERS Safety Report 23766914 (Version 1)
Quarter: 2024Q2

REPORT INFORMATION
  Report Type: Spontaneous
  Country: US (occurrence: US)
  Receive Date: 20240422
  Receipt Date: 20240422
  Transmission Date: 20240715
  Serious: Yes (Hospitalization)
  Sender: FDA-Public Use
  Company Number: US-DRL-USA-LIT/USA/24/0005900

PATIENT
  Age: 10 Year
  Sex: Male

DRUGS (2)
  1. LENALIDOMIDE [Suspect]
     Active Substance: LENALIDOMIDE
     Indication: Astrocytoma
     Dosage: ON DAYS 1-21 OF EACH 28-DAY CYCLE
  2. TRAMETINIB [Suspect]
     Active Substance: TRAMETINIB
     Indication: Astrocytoma

REACTIONS (5)
  - Disease progression [Unknown]
  - Drug interaction [Unknown]
  - Rash [Unknown]
  - Paronychia [Unknown]
  - Treatment failure [Unknown]
